FAERS Safety Report 4348069-7 (Version None)
Quarter: 2004Q2

REPORT INFORMATION
  Report Type: 
  Country: None (occurrence: None)
  Receive Date: 20040422
  Receipt Date: 20040413
  Transmission Date: 20050107
  Serious: Yes (Hospitalization)
  Sender: FDA-Public Use
  Company Number: CHPA2004US01983

PATIENT
  Age: 28 Year
  Sex: Female
  Weight: 68.5 kg

DRUGS (1)
  1. HABITROL [Suspect]
     Indication: SMOKING CESSATION THERAPY
     Dosage: 1 PATCH QD, TRANSDERMAL
     Route: 062
     Dates: start: 20030415, end: 20030630

REACTIONS (1)
  - FOOD ALLERGY [None]
